FAERS Safety Report 22060460 (Version 1)
Quarter: 2023Q1

REPORT INFORMATION
  Report Type: Spontaneous
  Country: US (occurrence: US)
  Receive Date: 20230303
  Receipt Date: 20230303
  Transmission Date: 20230417
  Serious: No
  Sender: FDA-Public Use
  Company Number: US-ALLERGAN-2231894US

PATIENT
  Age: 68 Year
  Sex: Female

DRUGS (5)
  1. SAVELLA [Suspect]
     Active Substance: MILNACIPRAN HYDROCHLORIDE
     Indication: Fibromyalgia
     Dosage: 1 DF, QD
     Route: 048
     Dates: start: 20220926
  2. SAVELLA [Suspect]
     Active Substance: MILNACIPRAN HYDROCHLORIDE
     Dosage: 2 DF, QD
     Route: 048
     Dates: start: 20220925, end: 20220925
  3. LISINOPRIL [Concomitant]
     Active Substance: LISINOPRIL
     Indication: Hypertension
     Dosage: 5 MG, QD
     Route: 048
  4. GENEXA [Concomitant]
     Indication: Fibromyalgia
     Dosage: 2 DF, QD
  5. GENEXA [Concomitant]
     Indication: Insomnia
     Dosage: UNK

REACTIONS (3)
  - Head discomfort [Unknown]
  - Blood pressure increased [Not Recovered/Not Resolved]
  - Tachycardia [Not Recovered/Not Resolved]

NARRATIVE: CASE EVENT DATE: 20220925
